FAERS Safety Report 24986988 (Version 1)
Quarter: 2025Q1

REPORT INFORMATION
  Report Type: Spontaneous
  Country: US (occurrence: None)
  Receive Date: 20250219
  Receipt Date: 20250219
  Transmission Date: 20250409
  Serious: Yes (Hospitalization)
  Sender: FDA-CTU
  Company Number: None

PATIENT
  Sex: Female

DRUGS (1)
  1. HERBALS\TETRAHYDROCANNABINOL UNSPECIFIED [Suspect]
     Active Substance: HERBALS\TETRAHYDROCANNABINOL UNSPECIFIED

REACTIONS (16)
  - Gait disturbance [None]
  - Dyskinesia [None]
  - Eye movement disorder [None]
  - Abnormal behaviour [None]
  - Foaming at mouth [None]
  - Sensory disturbance [None]
  - Paranoia [None]
  - Slow speech [None]
  - Malaise [None]
  - Vomiting [None]
  - Dysarthria [None]
  - Aggression [None]
  - Blood pressure increased [None]
  - Overdose [None]
  - Loss of consciousness [None]
  - Hallucination [None]
